FAERS Safety Report 13907875 (Version 1)
Quarter: 2017Q3

REPORT INFORMATION
  Report Type: Spontaneous
  Country: US (occurrence: US)
  Receive Date: 20170825
  Receipt Date: 20170825
  Transmission Date: 20171127
  Serious: No
  Sender: FDA-Public Use
  Company Number: US-ROCHE-1122159

PATIENT
  Sex: Female

DRUGS (3)
  1. NUTROPIN [Suspect]
     Active Substance: SOMATROPIN
     Dosage: 10 UNIT
     Route: 050
  2. NUTROPIN [Suspect]
     Active Substance: SOMATROPIN
     Dosage: 0.20 ML
     Route: 050
  3. NUTROPIN [Suspect]
     Active Substance: SOMATROPIN
     Indication: HYPOPITUITARISM
     Dosage: 0.44 ML
     Route: 050

REACTIONS (2)
  - Nausea [Unknown]
  - Vomiting [Unknown]
